FAERS Safety Report 4659386-5 (Version None)
Quarter: 2005Q2

REPORT INFORMATION
  Report Type: 
  Country: None (occurrence: None)
  Receive Date: 20050510
  Receipt Date: 20050201
  Transmission Date: 20051028
  Serious: Yes (Hospitalization)
  Sender: FDA-Public Use
  Company Number: FR_050205740

PATIENT
  Age: 33 Year
  Sex: Male
  Weight: 70 kg

DRUGS (3)
  1. ZYPREXA [Suspect]
     Indication: SCHIZOPHRENIA
     Dosage: 1 DSG FORM DAY
     Route: 048
     Dates: start: 20040801, end: 20050201
  2. ZOLOFT [Concomitant]
  3. LYSANXIA                  (PRAZEPAM) [Concomitant]

REACTIONS (5)
  - HYPERTHYROIDISM [None]
  - HYPOKALAEMIA [None]
  - POLYDIPSIA [None]
  - POLYURIA [None]
  - QUADRIPARESIS [None]
